FAERS Safety Report 4305893-4 (Version None)
Quarter: 2004Q1

REPORT INFORMATION
  Report Type: 
  Country: None (occurrence: None)
  Receive Date: 20040226
  Receipt Date: 20040129
  Transmission Date: 20041129
  Serious: Yes (Death)
  Sender: FDA-Public Use
  Company Number: WAES 0401USA02173

PATIENT
  Age: 16 Month
  Sex: Male

DRUGS (2)
  1. [THERAPY UNSPECIFIED] [Concomitant]
  2. SINGULAIR [Suspect]
     Route: 048
     Dates: start: 20031201, end: 20031201

REACTIONS (1)
  - DEATH [None]
